APPROVED DRUG PRODUCT: CLOMIPHENE CITRATE
Active Ingredient: CLOMIPHENE CITRATE
Strength: 50MG
Dosage Form/Route: TABLET;ORAL
Application: A075528 | Product #001 | TE Code: AB
Applicant: COSETTE PHARMACEUTICALS INC
Approved: Aug 30, 1999 | RLD: No | RS: Yes | Type: RX